FAERS Safety Report 10529819 (Version 8)
Quarter: 2015Q2

REPORT INFORMATION
  Report Type: Spontaneous
  Country: CA (occurrence: CA)
  Receive Date: 20141021
  Receipt Date: 20150623
  Transmission Date: 20150821
  Serious: Yes (Hospitalization, Other)
  Sender: FDA-Public Use
  Company Number: CA-ROCHE-1477098

PATIENT
  Age: 61 Year
  Sex: Male

DRUGS (10)
  1. XOLAIR [Suspect]
     Active Substance: OMALIZUMAB
     Indication: ASTHMA
     Route: 058
     Dates: start: 20140811
  2. ADVAIR HFA [Concomitant]
     Active Substance: FLUTICASONE PROPIONATE\SALMETEROL XINAFOATE
  3. ALVESCO [Concomitant]
     Active Substance: CICLESONIDE
  4. SPIRIVA [Concomitant]
     Active Substance: TIOTROPIUM BROMIDE MONOHYDRATE
  5. SYMBICORT [Concomitant]
     Active Substance: BUDESONIDE\FORMOTEROL FUMARATE DIHYDRATE
  6. XOLAIR [Suspect]
     Active Substance: OMALIZUMAB
     Route: 058
     Dates: start: 20141111
  7. XOLAIR [Suspect]
     Active Substance: OMALIZUMAB
     Route: 058
     Dates: start: 20150203
  8. VENTOLIN [Concomitant]
     Active Substance: ALBUTEROL SULFATE
  9. NASONEX [Concomitant]
     Active Substance: MOMETASONE FUROATE
  10. XOLAIR [Suspect]
     Active Substance: OMALIZUMAB
     Route: 058
     Dates: start: 20150609

REACTIONS (13)
  - Somnolence [Unknown]
  - Herpes zoster [Not Recovered/Not Resolved]
  - Respiratory rate increased [Unknown]
  - Hypotension [Unknown]
  - Asthma [Unknown]
  - Blood cholesterol increased [Unknown]
  - Hypertension [Recovering/Resolving]
  - Oedema peripheral [Unknown]
  - Drug ineffective [Unknown]
  - Pain [Unknown]
  - Pulmonary mass [Unknown]
  - Scab [Not Recovered/Not Resolved]
  - Nasopharyngitis [Unknown]

NARRATIVE: CASE EVENT DATE: 201409
